FAERS Safety Report 5253069-9 (Version None)
Quarter: 2007Q1

REPORT INFORMATION
  Report Type: 
  Country: None (occurrence: None)
  Receive Date: 20070301
  Receipt Date: 20070216
  Transmission Date: 20070707
  Serious: Yes (Other)
  Sender: FDA-Public Use
  Company Number: PHBS2007PT03230

PATIENT
  Age: 72 Year
  Sex: Female

DRUGS (3)
  1. CANEF (LIC. ASTRA) [Suspect]
     Dosage: 80 MG, UNK
     Route: 048
     Dates: start: 20061229
  2. LEVOTHYROXINE SODIUM [Concomitant]
     Indication: HYPOTHYROIDISM
     Dosage: 5 MG, QD
     Route: 048
     Dates: start: 19970101
  3. MEXAZOLAM [Concomitant]
     Indication: INSOMNIA
     Dosage: 1 MG, UNK
     Route: 048

REACTIONS (6)
  - ABDOMINAL PAIN [None]
  - EYE SWELLING [None]
  - LIP SWELLING [None]
  - NAUSEA [None]
  - SWELLING FACE [None]
  - VOMITING [None]
